FAERS Safety Report 9195133 (Version 1)
Quarter: 2013Q1

REPORT INFORMATION
  Report Type: Spontaneous
  Country: US (occurrence: US)
  Receive Date: 20130328
  Receipt Date: 20130328
  Transmission Date: 20140127
  Serious: No
  Sender: FDA-Public Use
  Company Number: US-ALLERGAN-1216279US

PATIENT
  Age: 77 Year
  Sex: Female

DRUGS (5)
  1. LATISSE 0.03% [Suspect]
     Indication: GROWTH OF EYELASHES
     Dosage: 2 GTT, QHS
     Route: 061
     Dates: start: 20121119
  2. VERAPAMIL [Concomitant]
     Indication: CARDIAC DISORDER
     Dosage: 240 MG, QD
     Route: 048
  3. LOSARTAN [Concomitant]
     Indication: HYPERTENSION
     Dosage: 100 MG, QD
     Route: 048
  4. CYMBALTA [Concomitant]
     Indication: BACK PAIN
     Dosage: 60 MG, UNK
     Route: 048
  5. TRIMETHOPRIM SULFATE AND POLYMYXIN B SULFATE, 0.1% [Concomitant]
     Indication: BLADDER DISORDER
     Dosage: 100 MG, QD
     Route: 048

REACTIONS (7)
  - Skin disorder [Recovered/Resolved]
  - Skin wrinkling [Recovered/Resolved]
  - Swelling face [Recovered/Resolved]
  - Wrong technique in drug usage process [Unknown]
  - Eyelids pruritus [Recovered/Resolved]
  - Eyelid oedema [Recovered/Resolved]
  - Erythema of eyelid [Recovered/Resolved]
